FAERS Safety Report 4643564-5 (Version None)
Quarter: 2005Q2

REPORT INFORMATION
  Report Type: 
  Country: None (occurrence: None)
  Receive Date: 20050331
  Receipt Date: 20050104
  Transmission Date: 20051028
  Serious: Yes (Hospitalization)
  Sender: FDA-Public Use
  Company Number: 05P-163-0285366-00

PATIENT
  Age: 41 Year
  Sex: Male
  Weight: 98.8842 kg

DRUGS (4)
  1. HUMIRA [Suspect]
     Indication: RHEUMATOID ARTHRITIS
     Dosage: 40 MG, 1 IN 2 WK, SUBCUTANEOUS
     Route: 058
     Dates: start: 20040914
  2. BUCINDOLOL HYDROCHLORIDE [Concomitant]
  3. MORPHINE [Concomitant]
  4. PROMETHAZINE [Concomitant]

REACTIONS (3)
  - CHEST PAIN [None]
  - DYSPNOEA [None]
  - RASH MACULAR [None]
